FAERS Safety Report 4429796-X (Version None)
Quarter: 2004Q3

REPORT INFORMATION
  Report Type: 
  Country: None (occurrence: None)
  Receive Date: 20040817
  Receipt Date: 20040809
  Transmission Date: 20050211
  Serious: Yes (Hospitalization, Other)
  Sender: FDA-Public Use
  Company Number: 2004227770US

PATIENT
  Age: 81 Year
  Sex: Female
  Weight: 73 kg

DRUGS (4)
  1. BEXTRA [Suspect]
     Dosage: 20 MG, QD
     Dates: start: 20040717, end: 20040727
  2. ZESTRIL [Concomitant]
  3. PREMARIN [Concomitant]
  4. ASPIRIN [Concomitant]

REACTIONS (5)
  - BLOOD PRESSURE DECREASED [None]
  - LOSS OF CONSCIOUSNESS [None]
  - PRURITUS [None]
  - RASH [None]
  - SKIN LESION [None]
